FAERS Safety Report 5261427-1 (Version None)
Quarter: 2007Q1

REPORT INFORMATION
  Report Type: 
  Country: None (occurrence: None)
  Receive Date: 20070307
  Receipt Date: 20070221
  Transmission Date: 20070707
  Serious: Yes (Death, Life-Threatening, Hospitalization)
  Sender: FDA-Public Use
  Company Number: 2007000335

PATIENT
  Age: 61 Year
  Sex: Female

DRUGS (3)
  1. ERLOTINIB (TABLET) (ERLOTINIB HCL) [Suspect]
     Indication: NON-SMALL CELL LUNG CANCER
     Dosage: 150 MG (QD), ORAL
     Route: 048
  2. ANTIVITAMIN K [Suspect]
  3. AMIODARONE HCL [Suspect]

REACTIONS (3)
  - ACUTE RESPIRATORY FAILURE [None]
  - GLOBULINS DECREASED [None]
  - OVERDOSE [None]
